FAERS Safety Report 16291871 (Version 2)
Quarter: 2019Q2

REPORT INFORMATION
  Report Type: Report from Study
  Country: CA (occurrence: CA)
  Receive Date: 20190509
  Receipt Date: 20190516
  Transmission Date: 20190711
  Serious: Yes (Congenital Anomaly, Other)
  Sender: FDA-Public Use
  Company Number: CA-TEVA-2019-CA-1047631

PATIENT

DRUGS (8)
  1. TENOFOVIR [Suspect]
     Active Substance: TENOFOVIR
     Route: 065
  2. EMTRICITABINE (EMTRIVA, FTC) [Concomitant]
  3. NEVIRAPINE. [Suspect]
     Active Substance: NEVIRAPINE
     Indication: HIV INFECTION
     Route: 065
  4. ZIDOVUDINE ORAL [Concomitant]
     Active Substance: ZIDOVUDINE
     Route: 048
  5. NEVIRAPINE. [Concomitant]
     Active Substance: NEVIRAPINE
  6. EFAVIRENZ+TENOFOVIR DISOPROXIL MALEATE+EMTRICITABINE GENERIC -MYLAN [Concomitant]
  7. LAMIVUDINE. [Concomitant]
     Active Substance: LAMIVUDINE
  8. TENOFOVIR DISOPROXIL FUMARATE. [Concomitant]
     Active Substance: TENOFOVIR DISOPROXIL FUMARATE

REACTIONS (3)
  - Foetal exposure during pregnancy [Unknown]
  - Atrial septal defect [Unknown]
  - Ventricular septal defect [Unknown]
